FAERS Safety Report 22970235 (Version 2)
Quarter: 2023Q4

REPORT INFORMATION
  Report Type: Spontaneous
  Country: IT (occurrence: IT)
  Receive Date: 20230922
  Receipt Date: 20231004
  Transmission Date: 20240109
  Serious: Yes (Hospitalization)
  Sender: FDA-Public Use
  Company Number: IT-BoehringerIngelheim-2023-BI-261657

PATIENT
  Age: 75 Year
  Sex: Male

DRUGS (11)
  1. JARDIANCE [Suspect]
     Active Substance: EMPAGLIFLOZIN
     Indication: Left ventricular dysfunction
     Dates: start: 20230718, end: 20230728
  2. EDOXABAN TOSYLATE [Concomitant]
     Active Substance: EDOXABAN TOSYLATE
     Indication: Anticoagulant therapy
     Dosage: 60MG 1 CP (AS REPORTED) AT 2:00 PM
     Dates: start: 202105
  3. AMIODARONE [Concomitant]
     Active Substance: AMIODARONE
     Indication: Product used for unknown indication
     Dosage: 200 MG, 1/2 CP (AS REPORTED)
     Dates: start: 202203
  4. AMIODARONE [Concomitant]
     Active Substance: AMIODARONE
     Dates: start: 2021, end: 202203
  5. AMIODARONE [Concomitant]
     Active Substance: AMIODARONE
     Dosage: 200MG 1 CP (AS REPORTED) X 2?DOSAGE AFTER DISCHARGE
  6. BISOPROLOL [Concomitant]
     Active Substance: BISOPROLOL\BISOPROLOL FUMARATE
     Indication: Product used for unknown indication
     Dosage: DOSE INCREASED IN SEPTEMBER 2021
     Dates: start: 202109
  7. BISOPROLOL [Concomitant]
     Active Substance: BISOPROLOL\BISOPROLOL FUMARATE
     Dosage: DOSE REDUCED AFTER NOVEMBER 2021
  8. BISOPROLOL [Concomitant]
     Active Substance: BISOPROLOL\BISOPROLOL FUMARATE
     Dosage: 1.25 THERAPY AS OF 28-JUL-2023
     Dates: start: 20230728
  9. RAMIPRIL [Concomitant]
     Active Substance: RAMIPRIL
     Indication: Product used for unknown indication
     Dosage: 2.5 MG 1CP (AS REPORTED)
  10. ATORVASTATIN [Concomitant]
     Active Substance: ATORVASTATIN
     Indication: Product used for unknown indication
     Dosage: 40MG 1 CP (AS REPORTED) IN THE EVENING
  11. Luvion [Concomitant]
     Indication: Product used for unknown indication
     Dosage: 50MG 1/2 CP (AS REPORTED)

REACTIONS (2)
  - Ventricular tachycardia [Recovered/Resolved]
  - Malaise [Unknown]
